FAERS Safety Report 8600602-2 (Version None)
Quarter: 2012Q3

REPORT INFORMATION
  Report Type: 
  Country: None (occurrence: None)
  Receive Date: 20120817
  Receipt Date: 20120802
  Transmission Date: 20120928
  Serious: No
  Sender: FDA-Public Use
  Company Number: US-JNJFOC-20120803471

PATIENT
  Sex: Female
  Weight: 70.31 kg

DRUGS (6)
  1. FENTANYL-100 [Suspect]
     Indication: BACK PAIN
     Route: 062
     Dates: start: 20120801
  2. NEURONTIN [Concomitant]
     Indication: NEURALGIA
     Route: 048
     Dates: start: 20070101
  3. ROPINIROLE [Concomitant]
     Indication: MUSCLE TWITCHING
     Route: 048
  4. PERCOCET [Concomitant]
     Indication: PAIN
     Dosage: 5/325 MG
     Route: 048
  5. IMITREX [Concomitant]
     Indication: MIGRAINE
     Dosage: AS NEEDED
     Route: 048
  6. OMEPRAZOLE [Concomitant]
     Indication: GASTRIC DISORDER
     Route: 048

REACTIONS (2)
  - DRUG ADMINISTERED AT INAPPROPRIATE SITE [None]
  - PRODUCT QUALITY ISSUE [None]
